FAERS Safety Report 4809999-2 (Version None)
Quarter: 2005Q4

REPORT INFORMATION
  Report Type: 
  Country: None (occurrence: None)
  Receive Date: 20051024
  Receipt Date: 20050322
  Transmission Date: 20060501
  Serious: Yes (Hospitalization)
  Sender: FDA-Public Use
  Company Number: 05-03-0474

PATIENT

DRUGS (1)
  1. ENALAPRIL MALEATE- IPI TABLETS [Suspect]
     Indication: BLOOD PRESSURE
     Dosage: 10MG ORAL
     Route: 048

REACTIONS (4)
  - BLOOD PRESSURE INCREASED [None]
  - DRUG INEFFECTIVE [None]
  - INTRACRANIAL ANEURYSM [None]
  - THERAPEUTIC RESPONSE UNEXPECTED WITH DRUG SUBSTITUTION [None]
